FAERS Safety Report 25918870 (Version 1)
Quarter: 2025Q4

REPORT INFORMATION
  Report Type: Spontaneous
  Country: US (occurrence: None)
  Receive Date: 20251011
  Receipt Date: 20251011
  Transmission Date: 20260118
  Serious: Yes (Disabling)
  Sender: FDA-CTU
  Company Number: None

PATIENT
  Age: 30 Year
  Sex: Female
  Weight: 76.5 kg

DRUGS (6)
  1. QELBREE [Suspect]
     Active Substance: VILOXAZINE HYDROCHLORIDE
     Indication: Attention deficit hyperactivity disorder
     Dosage: OTHER QUANTITY : 2 CAPSULE(S);?
     Route: 048
     Dates: start: 20250901, end: 20251011
  2. Spirolactone 200mg [Concomitant]
  3. VITAMIN B12 [Concomitant]
     Active Substance: CYANOCOBALAMIN
  4. VITAMIN D [Concomitant]
     Active Substance: VITAMIN D NOS
  5. IRON [Concomitant]
     Active Substance: IRON
  6. POTASSIUM [Concomitant]
     Active Substance: POTASSIUM

REACTIONS (6)
  - Fatigue [None]
  - Anxiety [None]
  - Heart rate abnormal [None]
  - Hyperhidrosis [None]
  - Dyspnoea [None]
  - Presyncope [None]

NARRATIVE: CASE EVENT DATE: 20251001
